FAERS Safety Report 25850214 (Version 6)
Quarter: 2025Q4

REPORT INFORMATION
  Report Type: Report from Study
  Country: EU (occurrence: EU)
  Receive Date: 20250926
  Receipt Date: 20251222
  Transmission Date: 20260118
  Serious: Yes (Hospitalization)
  Sender: ABBVIE
  Company Number: EU-ABBVIE-6475575

PATIENT
  Age: 61 Year
  Sex: Female

DRUGS (1)
  1. FOSCARBIDOPA\FOSLEVODOPA [Suspect]
     Active Substance: FOSCARBIDOPA\FOSLEVODOPA
     Indication: Parkinson^s disease
     Dosage: SD: 0.40ML, CRN: 0.20ML/H, CR: 0.24ML/H, CRH: 0.25 ML/H, ED: 0.20 ML.
     Route: 058
     Dates: start: 20250709

REACTIONS (9)
  - Cerebral haemorrhage [Recovering/Resolving]
  - Fall [Recovered/Resolved]
  - Dizziness [Recovering/Resolving]
  - Infusion site inflammation [Recovering/Resolving]
  - Loss of consciousness [Recovered/Resolved]
  - Device breakage [Unknown]
  - Infusion site inflammation [Recovering/Resolving]
  - Freezing phenomenon [Unknown]
  - Hypokinesia [Unknown]

NARRATIVE: CASE EVENT DATE: 20250101
